FAERS Safety Report 6636183-2 (Version None)
Quarter: 2010Q1

REPORT INFORMATION
  Report Type: 
  Country: None (occurrence: None)
  Receive Date: 20100316
  Receipt Date: 20100304
  Transmission Date: 20100710
  Serious: Yes (Hospitalization, Disabling)
  Sender: FDA-Public Use
  Company Number: US-ELI_LILLY_AND_COMPANY-US200911006329

PATIENT
  Sex: Male
  Weight: 94.331 kg

DRUGS (11)
  1. ZYPREXA ZYDIS [Suspect]
     Dosage: 25 MG, EACH EVENING
  2. ZYPREXA ZYDIS [Suspect]
     Dosage: 10 MG, UNK
  3. ZYPREXA ZYDIS [Suspect]
     Dosage: 20 MG, UNK
  4. ZYPREXA ZYDIS [Suspect]
     Dosage: 15 MG, UNK
  5. ZYPREXA ZYDIS [Suspect]
     Dosage: 25 MG, DAILY (1/D)
     Route: 048
     Dates: start: 20070301
  6. HALOPERIDOL [Concomitant]
     Dosage: 10 MG, AS NEEDED
  7. CITALOPRAM HYDROBROMIDE [Concomitant]
     Dosage: 20 MG, EACH MORNING
  8. LEXAPRO [Concomitant]
     Dosage: 20 MG, UNK
  9. BENZTROPINE MESYLATE [Concomitant]
     Indication: MUSCULOSKELETAL STIFFNESS
     Dosage: 2 MG, AS NEEDED
  10. ABILIFY [Concomitant]
     Dosage: 10 MG, 2/D
  11. ZOLOFT [Concomitant]
     Dosage: 100 MG, DAILY (1/D)

REACTIONS (7)
  - BLOOD GLUCOSE INCREASED [None]
  - DIABETES MELLITUS [None]
  - HAEMATURIA [None]
  - OVERDOSE [None]
  - SCHIZOPHRENIA, PARANOID TYPE [None]
  - TREATMENT NONCOMPLIANCE [None]
  - WEIGHT INCREASED [None]
